FAERS Safety Report 9684704 (Version 1)
Quarter: 2013Q4

REPORT INFORMATION
  Report Type: Spontaneous
  Country: DE (occurrence: DE)
  Receive Date: 20131112
  Receipt Date: 20131112
  Transmission Date: 20140711
  Serious: Yes (Hospitalization)
  Sender: FDA-Public Use
  Company Number: DE-ASTRAZENECA-2013SE81128

PATIENT
  Age: 55 Year
  Sex: Female

DRUGS (20)
  1. SEROQUEL [Suspect]
     Route: 048
     Dates: start: 20130606, end: 20130611
  2. SEROQUEL [Suspect]
     Route: 048
     Dates: start: 20130612, end: 20130619
  3. SEROQUEL [Suspect]
     Route: 048
     Dates: start: 20130620
  4. HALOPERIDOL [Suspect]
     Route: 048
     Dates: start: 20130409, end: 20130426
  5. HALOPERIDOL [Suspect]
     Route: 048
     Dates: start: 20130427, end: 20130603
  6. HALOPERIDOL [Suspect]
     Route: 048
     Dates: start: 20130604, end: 20130608
  7. HALOPERIDOL [Suspect]
     Route: 048
     Dates: start: 20130609, end: 20130628
  8. AMISULPRID [Suspect]
     Route: 065
  9. LORAZEPAM [Concomitant]
     Route: 048
     Dates: start: 20130428, end: 20130512
  10. LORAZEPAM [Concomitant]
     Route: 048
     Dates: start: 20130513, end: 20130526
  11. LORAZEPAM [Concomitant]
     Route: 048
     Dates: start: 20130527, end: 20130601
  12. LORAZEPAM [Concomitant]
     Route: 048
     Dates: start: 20130606, end: 20130616
  13. ZOPICLONE [Concomitant]
     Route: 048
     Dates: start: 20130415
  14. RAMIPRIL [Concomitant]
     Route: 048
     Dates: start: 20130228
  15. FERROSANOL [Concomitant]
     Route: 048
  16. L-THYROXIN [Concomitant]
     Route: 048
  17. PANTOPRAZOL [Concomitant]
     Route: 048
     Dates: start: 20130427
  18. THIAMIN [Concomitant]
     Route: 048
     Dates: start: 20130201
  19. MOVICOL [Concomitant]
     Route: 048
     Dates: start: 20130408
  20. COFFEINUM [Concomitant]
     Route: 048
     Dates: start: 20130515, end: 20130619

REACTIONS (1)
  - Liver function test abnormal [Recovering/Resolving]
